FAERS Safety Report 13355267 (Version 1)
Quarter: 2017Q1

REPORT INFORMATION
  Report Type: Report from Study
  Country: DE (occurrence: DE)
  Receive Date: 20170321
  Receipt Date: 20170321
  Transmission Date: 20170429
  Serious: Yes (Disabling, Other)
  Sender: FDA-Public Use
  Company Number: DE-ALIMERA SCIENCES LIMITED-DE-IL-2017-003357

PATIENT

DRUGS (19)
  1. METO-SUCCINAT [Concomitant]
     Indication: HYPERTONIA
     Dosage: UNK
     Dates: start: 2000
  2. FOLCUR [Concomitant]
     Indication: FOLATE DEFICIENCY
     Dosage: UNK
  3. SIMVA 20 [Concomitant]
     Indication: HYPERLIPIDAEMIA
     Dosage: UNK
  4. DORZOCOMP [Concomitant]
     Indication: GLAUCOMA
     Dosage: RIGHT EYE
     Dates: start: 200210, end: 20160916
  5. METEX [Concomitant]
     Indication: RHEUMATIC DISORDER
     Dosage: 7, 5 MG
  6. L-THYROXIN 50 [Concomitant]
     Active Substance: LEVOTHYROXINE SODIUM
     Indication: THYROID FUNCTION TEST ABNORMAL
     Dosage: UNK
  7. LATANOPROST. [Concomitant]
     Active Substance: LATANOPROST
     Indication: GLAUCOMA
     Dosage: BOTH EYES
     Dates: start: 200105
  8. FOSAVANCE 70 [Concomitant]
     Indication: OSTEOPOROSIS
     Dosage: UNK
  9. OMEPRAZOL [Concomitant]
     Active Substance: OMEPRAZOLE
     Dosage: UNK
  10. ILUVIEN [Suspect]
     Active Substance: FLUOCINOLONE ACETONIDE
     Indication: DIABETIC RETINAL OEDEMA
     Dosage: 0.25 RIGHT EYE
     Route: 031
     Dates: start: 20140916
  11. DORZOCOMP [Concomitant]
     Indication: GLAUCOMA
     Dosage: BOTH EYES
     Dates: start: 200210
  12. VOLTAREN OPHTA EYE DROPS [Concomitant]
     Indication: MACULAR OEDEMA
     Dosage: RIGHT EYE
     Dates: start: 20150907
  13. OSSOFORTIN FORTE [Concomitant]
     Indication: OSTEOPOROSIS
     Dosage: UNK
  14. AMLOLICH [Concomitant]
     Indication: HYPERTONIA
     Dosage: UNK
     Dates: start: 2000
  15. PREDNISOLON [Concomitant]
     Active Substance: PREDNISOLONE
     Indication: RHEUMATIC DISORDER
     Dosage: 2 MG, UNK
     Dates: start: 2000
  16. RAMIPRIL. [Concomitant]
     Active Substance: RAMIPRIL
     Indication: HYPERTONIA
     Dosage: UNK
     Dates: start: 2000
  17. GLIMEPIRID [Concomitant]
     Active Substance: GLIMEPIRIDE
     Indication: DIABETES MELLITUS
     Dosage: UNK
     Dates: start: 1995
  18. HCT ISIS [Concomitant]
     Indication: HYPERTONIA
     Dosage: UNK
     Dates: start: 2000
  19. FALITHROM [Concomitant]
     Active Substance: PHENPROCOUMON
     Indication: ANTICOAGULANT THERAPY
     Dosage: UNK
     Dates: start: 200602

REACTIONS (3)
  - Blindness [Recovered/Resolved]
  - Glaucoma [Recovered/Resolved]
  - Iris neovascularisation [Recovered/Resolved]

NARRATIVE: CASE EVENT DATE: 20160518
